FAERS Safety Report 5124799-4 (Version None)
Quarter: 2006Q4

REPORT INFORMATION
  Report Type: 
  Country: None (occurrence: None)
  Receive Date: 20061011
  Receipt Date: 20060619
  Transmission Date: 20070319
  Serious: Yes (Hospitalization)
  Sender: FDA-Public Use
  Company Number: JP-ROCHE-452467

PATIENT
  Age: 58 Year
  Sex: Male
  Weight: 52 kg

DRUGS (4)
  1. ROCEPHIN [Suspect]
     Indication: VIRAL INFECTION
     Route: 041
     Dates: start: 20060526, end: 20060529
  2. ROCEPHIN [Suspect]
     Route: 041
     Dates: start: 20060612, end: 20060615
  3. MINOCYCLINE HCL [Suspect]
     Indication: VIRAL INFECTION
     Route: 041
     Dates: start: 20060526, end: 20060529
  4. ASPARA K [Concomitant]
     Route: 048
     Dates: start: 20060526, end: 20060602

REACTIONS (3)
  - ALANINE AMINOTRANSFERASE INCREASED [None]
  - ASPARTATE AMINOTRANSFERASE INCREASED [None]
  - HEPATIC FUNCTION ABNORMAL [None]
